FAERS Safety Report 6087706-6 (Version None)
Quarter: 2009Q1

REPORT INFORMATION
  Report Type: 
  Country: None (occurrence: None)
  Receive Date: 20090223
  Receipt Date: 20090213
  Transmission Date: 20090719
  Serious: Yes (Hospitalization, Other)
  Sender: FDA-Public Use
  Company Number: AU-ROCHE-470011

PATIENT
  Sex: Male
  Weight: 67 kg

DRUGS (6)
  1. CAPECITABINE [Suspect]
     Route: 048
     Dates: start: 20061013
  2. BEVACIZUMAB [Suspect]
     Route: 042
     Dates: start: 20061013
  3. MITOMYCIN [Suspect]
     Route: 042
  4. MITOMYCIN [Suspect]
     Route: 042
     Dates: start: 20061013
  5. NIZATIDINE [Concomitant]
     Route: 048
     Dates: start: 20060801
  6. LISINOPRIL [Concomitant]
     Route: 048
     Dates: start: 19980101

REACTIONS (5)
  - ILEUS PARALYTIC [None]
  - INTESTINAL OBSTRUCTION [None]
  - MALIGNANT HYPERTENSION [None]
  - PNEUMONIA ASPIRATION [None]
  - PROTEINURIA [None]
